FAERS Safety Report 23542215 (Version 1)
Quarter: 2024Q1

REPORT INFORMATION
  Report Type: Spontaneous
  Country: US (occurrence: None)
  Receive Date: 20240220
  Receipt Date: 20240220
  Transmission Date: 20240409
  Serious: No
  Sender: FDA-Public Use
  Company Number: US-ROCHE-3425088

PATIENT
  Sex: Male

DRUGS (1)
  1. ROZLYTREK [Suspect]
     Active Substance: ENTRECTINIB
     Indication: Lung neoplasm malignant
     Dosage: STRENGTH : 200 MG.
     Route: 048
     Dates: start: 202308

REACTIONS (6)
  - Dizziness [Unknown]
  - Balance disorder [Unknown]
  - Vision blurred [Unknown]
  - Confusional state [Unknown]
  - Taste disorder [Unknown]
  - Fall [Unknown]
